FAERS Safety Report 7776502-7 (Version None)
Quarter: 2011Q3

REPORT INFORMATION
  Report Type: 
  Country: None (occurrence: None)
  Receive Date: 20110926
  Receipt Date: 20110921
  Transmission Date: 20111222
  Serious: Yes (Other)
  Sender: FDA-Public Use
  Company Number: US-PFIZER INC-2011224839

PATIENT
  Age: 10 Year
  Sex: Female

DRUGS (1)
  1. CHILDREN'S ADVIL COLD [Suspect]
     Dosage: UNK, 2X/DAY
     Route: 048

REACTIONS (2)
  - HYPOAESTHESIA [None]
  - SPEECH DISORDER [None]
